FAERS Safety Report 23413712 (Version 1)
Quarter: 2024Q1

REPORT INFORMATION
  Report Type: Spontaneous
  Country: US (occurrence: US)
  Receive Date: 20240117
  Receipt Date: 20240117
  Transmission Date: 20240410
  Serious: No
  Sender: FDA-Public Use
  Company Number: US-NOVOPROD-1114521

PATIENT
  Sex: Female

DRUGS (1)
  1. OZEMPIC [Suspect]
     Active Substance: SEMAGLUTIDE
     Indication: Obesity
     Dosage: 0.25, UNKNOWN- 2MG
     Route: 058
     Dates: end: 20230722

REACTIONS (5)
  - Malaise [Recovered/Resolved]
  - Corrective lens user [Unknown]
  - Abdominal pain upper [Recovered/Resolved]
  - Product storage error [Unknown]
  - Off label use [Unknown]
